FAERS Safety Report 10089879 (Version 1)
Quarter: 2014Q2

REPORT INFORMATION
  Report Type: Spontaneous
  Country: US (occurrence: US)
  Receive Date: 20140421
  Receipt Date: 20140421
  Transmission Date: 20141212
  Serious: No
  Sender: FDA-Public Use
  Company Number: US-ABBVIE-13P-163-1078094-00

PATIENT
  Age: 12 Year
  Sex: Female

DRUGS (1)
  1. LUPRON DEPOT-PED (3 MONTH) [Suspect]
     Indication: TURNER^S SYNDROME
     Route: 030
     Dates: start: 201212

REACTIONS (3)
  - Injection site pain [Unknown]
  - Injection site pain [Unknown]
  - Injection site warmth [Unknown]
